FAERS Safety Report 9690095 (Version 1)
Quarter: 2013Q4

REPORT INFORMATION
  Report Type: Spontaneous
  Country: US (occurrence: US)
  Receive Date: 20131115
  Receipt Date: 20131115
  Transmission Date: 20140711
  Serious: No
  Sender: FDA-Public Use
  Company Number: US-PFIZER INC-2013322818

PATIENT
  Sex: Female

DRUGS (2)
  1. ADVIL [Suspect]
     Indication: SCIATICA
     Dosage: UNK
  2. ADVIL [Suspect]
     Indication: DISCOMFORT

REACTIONS (3)
  - Sleep disorder [Unknown]
  - Hearing impaired [Unknown]
  - Pollakiuria [Unknown]
